FAERS Safety Report 11554792 (Version 3)
Quarter: 2015Q4

REPORT INFORMATION
  Report Type: Report from Study
  Country: IT (occurrence: IT)
  Receive Date: 20150925
  Receipt Date: 20151104
  Transmission Date: 20160304
  Serious: Yes (Death, Hospitalization)
  Sender: FDA-Public Use
  Company Number: IT-AMGEN-ITACT2015099837

PATIENT
  Age: 69 Year
  Sex: Female
  Weight: 78 kg

DRUGS (14)
  1. CARFILZOMIB [Suspect]
     Active Substance: CARFILZOMIB
     Indication: PLASMA CELL MYELOMA
     Dosage: 70 MG/M2, PER CHEMO REGIM
     Route: 042
     Dates: start: 20150630, end: 20150922
  2. PANTOPRAZOLE [Concomitant]
     Active Substance: PANTOPRAZOLE SODIUM
     Indication: GASTRIC DISORDER
     Dosage: 20 MG, AS NECESSARY
     Route: 048
     Dates: start: 20150630
  3. FOLINER [Concomitant]
     Indication: ANAEMIA PROPHYLAXIS
     Dosage: 2 MG, AS NECESSARY
     Route: 048
     Dates: start: 20150119
  4. EPOETIN ZETA [Concomitant]
     Active Substance: ERYTHROPOIETIN
     Indication: ANAEMIA PROPHYLAXIS
     Dosage: 20000 IU, QWK
     Route: 058
     Dates: start: 20150811
  5. DEXAMETHASONE. [Suspect]
     Active Substance: DEXAMETHASONE
     Indication: PLASMA CELL MYELOMA
     Dosage: 20 MG, PER CHEMO REGIM
     Route: 048
     Dates: start: 20150630, end: 20150922
  6. MICARDIS [Concomitant]
     Active Substance: TELMISARTAN
     Indication: HYPERTENSION
     Dosage: 80 MG, QD
     Route: 048
  7. FUROSEMIDE. [Concomitant]
     Active Substance: FUROSEMIDE
     Indication: FLUID RETENTION
     Dosage: 25 MG, AS NECESSARY
     Route: 048
     Dates: start: 20150630
  8. LERCANIDIPINE [Concomitant]
     Active Substance: LERCANIDIPINE
     Indication: HYPERTENSION
     Dosage: 20 MG, QD
     Route: 048
  9. DICOFLOR [Concomitant]
     Indication: DYSBACTERIOSIS
     Dosage: 1 UNIT, BID
     Route: 048
     Dates: start: 20150914
  10. CYCLOPHOSPHAMIDE. [Concomitant]
     Active Substance: CYCLOPHOSPHAMIDE
     Indication: PLASMA CELL MYELOMA
     Dosage: 300 MG/M2, PER CHEMO REGIM
     Route: 048
     Dates: start: 20150630, end: 20150922
  11. CARVEDIOL [Concomitant]
     Active Substance: CARVEDILOL
     Indication: HYPERTENSION
     Dosage: 25 MG, QD
     Route: 048
  12. COLECALCIFEROL [Concomitant]
     Active Substance: CHOLECALCIFEROL
     Indication: BONE DISORDER
     Dosage: 30 GTT, QWK
     Route: 048
     Dates: start: 20150209
  13. ARIXTRA [Concomitant]
     Active Substance: FONDAPARINUX SODIUM
     Indication: THROMBOSIS
     Dosage: 2.5 ML, QD
     Route: 058
     Dates: start: 20150829
  14. KEPPRA [Concomitant]
     Active Substance: LEVETIRACETAM
     Indication: MENINGIOMA
     Dosage: 500 MG, BID
     Route: 048

REACTIONS (1)
  - Pulmonary embolism [Fatal]

NARRATIVE: CASE EVENT DATE: 20150922
